FAERS Safety Report 7343324-0 (Version None)
Quarter: 2011Q1

REPORT INFORMATION
  Report Type: 
  Country: None (occurrence: None)
  Receive Date: 20110310
  Receipt Date: 20110215
  Transmission Date: 20110831
  Serious: Yes (Life-Threatening)
  Sender: FDA-Public Use
  Company Number: FR-JNJFOC-20110303488

PATIENT
  Sex: Female

DRUGS (15)
  1. TRIFLUCAN [Suspect]
     Indication: ASCITES
     Route: 042
  2. TRIFLUCAN [Suspect]
     Indication: LEUKOCYTOSIS
     Route: 042
  3. CILASTATIN W/IMIPENEM [Suspect]
     Indication: ASCITES
     Route: 065
  4. INIPOMP [Suspect]
     Indication: ULCER
     Route: 042
  5. MORPHINE HCL [Suspect]
     Indication: PRODUCT USED FOR UNKNOWN INDICATION
     Route: 042
  6. PARACETAMOL [Suspect]
     Route: 065
  7. CILASTATIN W/IMIPENEM [Suspect]
     Indication: LEUKOCYTOSIS
     Route: 065
  8. CONTRAMAL [Suspect]
     Indication: PRODUCT USED FOR UNKNOWN INDICATION
     Route: 042
  9. ALBUMIN (HUMAN) [Suspect]
     Indication: PRODUCT USED FOR UNKNOWN INDICATION
     Route: 042
  10. TRIFLUCAN [Suspect]
     Indication: PNEUMOPERITONEUM
     Route: 042
  11. INSULIN [Suspect]
     Indication: PRODUCT USED FOR UNKNOWN INDICATION
     Route: 042
  12. PARACETAMOL [Suspect]
     Indication: PRODUCT USED FOR UNKNOWN INDICATION
     Route: 065
  13. NEXIUM [Suspect]
     Indication: ULCER
     Route: 065
  14. CILASTATIN W/IMIPENEM [Suspect]
     Indication: PNEUMOPERITONEUM
     Route: 065
  15. NORADRENALINE [Suspect]
     Indication: PRODUCT USED FOR UNKNOWN INDICATION
     Route: 042

REACTIONS (1)
  - THROMBOCYTOPENIA [None]
